FAERS Safety Report 5522443-5 (Version None)
Quarter: 2007Q4

REPORT INFORMATION
  Report Type: 
  Country: None (occurrence: None)
  Receive Date: 20071120
  Receipt Date: 20071108
  Transmission Date: 20080405
  Serious: Yes (Other)
  Sender: FDA-Public Use
  Company Number: PHBS2007BR12369

PATIENT
  Age: 47 Year
  Sex: Female
  Weight: 60 kg

DRUGS (8)
  1. OLCADIL [Suspect]
     Indication: ANXIETY
     Dosage: 1 TABLET DAILY
     Dates: start: 20060101
  2. OLCADIL [Suspect]
     Dosage: 1/2 TABLET DAILY
     Dates: end: 20070401
  3. DIAZEPAM [Suspect]
     Indication: ANXIETY
     Dosage: 0.5 TABLET/D
     Route: 048
     Dates: start: 20070501
  4. DIAZEPAM [Suspect]
     Dosage: 1 TABLET/D
     Route: 048
     Dates: end: 20070720
  5. CITALOPRAM [Suspect]
     Indication: DEPRESSION
     Dosage: 0.5 TABLET/D
     Route: 048
     Dates: start: 20070717, end: 20070719
  6. TRILEPTAL [Suspect]
     Indication: CONVULSION
     Dosage: 1.5 TABLETS IN MORNING AND 0.5 TABLET NIGHT
     Route: 048
     Dates: start: 20070726
  7. TRILEPTAL [Suspect]
     Dosage: 300 MG/D
     Route: 048
     Dates: start: 19960501
  8. TRILEPTAL [Suspect]
     Dosage: 300 MG, BID
     Route: 048
     Dates: start: 20060101

REACTIONS (27)
  - AGITATION [None]
  - ANOREXIA [None]
  - ANXIETY [None]
  - APATHY [None]
  - COLD SWEAT [None]
  - CONVULSION [None]
  - COORDINATION ABNORMAL [None]
  - DAYDREAMING [None]
  - DEPRESSION [None]
  - DIZZINESS [None]
  - DRUG INTERACTION [None]
  - DRY MOUTH [None]
  - FEELING HOT [None]
  - FEELING OF DESPAIR [None]
  - FORMICATION [None]
  - HEART RATE INCREASED [None]
  - INSOMNIA [None]
  - MEMORY IMPAIRMENT [None]
  - MENTAL IMPAIRMENT [None]
  - PHOBIA [None]
  - SEDATION [None]
  - SOMNOLENCE [None]
  - TACHYCARDIA [None]
  - TREMOR [None]
  - VISION BLURRED [None]
  - VISUAL DISTURBANCE [None]
  - WEIGHT DECREASED [None]
